FAERS Safety Report 6121335-0 (Version None)
Quarter: 2009Q1

REPORT INFORMATION
  Report Type: 
  Country: None (occurrence: None)
  Receive Date: 20090313
  Receipt Date: 20090313
  Transmission Date: 20090719
  Serious: Yes (Hospitalization, Disabling)
  Sender: FDA-Public Use
  Company Number: None

PATIENT
  Age: 74 Year
  Sex: Female
  Weight: 68.0396 kg

DRUGS (2)
  1. LOVENOX [Suspect]
     Indication: HIP SURGERY
     Dates: start: 20090212, end: 20090215
  2. CEFLAZONE [Concomitant]

REACTIONS (9)
  - ABASIA [None]
  - BLISTER [None]
  - BURNING SENSATION [None]
  - CELLULITIS [None]
  - DRUG ADMINISTRATION ERROR [None]
  - RASH ERYTHEMATOUS [None]
  - SKIN DISCOLOURATION [None]
  - SKIN ULCER [None]
  - WOUND [None]
